FAERS Safety Report 4744952-9 (Version None)
Quarter: 2005Q3

REPORT INFORMATION
  Report Type: 
  Country: None (occurrence: None)
  Receive Date: 20050811
  Receipt Date: 20050803
  Transmission Date: 20060218
  Serious: Yes (Death)
  Sender: FDA-Public Use
  Company Number: USA-2005-0020942

PATIENT
  Age: 58 Year
  Sex: Male

DRUGS (3)
  1. OXYCODONE HCL [Suspect]
     Indication: CANCER PAIN
  2. OXYCODONE HCL [Suspect]
     Indication: CANCER PAIN
     Dosage: 20 ML, Q 1H, ORAL
     Route: 048
  3. DURAGESIC-100 [Suspect]
     Indication: CANCER PAIN
     Dosage: 150 MCG, TRANSDERMAL
     Route: 062

REACTIONS (3)
  - MALIGNANT NEOPLASM PROGRESSION [None]
  - SMALL CELL LUNG CANCER METASTATIC [None]
  - VOMITING [None]
